FAERS Safety Report 8608054 (Version 4)
Quarter: 2014Q1

REPORT INFORMATION
  Report Type: Spontaneous
  Country: US (occurrence: US)
  Receive Date: 20120611
  Receipt Date: 20140114
  Transmission Date: 20141002
  Serious: Yes (Hospitalization, Disabling, Other)
  Sender: FDA-Public Use
  Company Number: US-ASTRAZENECA-2012SE35852

PATIENT
  Age: 44 Year
  Sex: Male
  Weight: 102.1 kg

DRUGS (19)
  1. NEXIUM [Suspect]
     Indication: GASTROOESOPHAGEAL REFLUX DISEASE
     Route: 048
  2. NEXIUM [Suspect]
     Indication: GASTROOESOPHAGEAL REFLUX DISEASE
     Dosage: ONCE A DAY
     Route: 048
     Dates: start: 200611
  3. NEXIUM [Suspect]
     Indication: GASTROOESOPHAGEAL REFLUX DISEASE
     Route: 048
     Dates: start: 20070907
  4. PRILOSEC [Suspect]
     Indication: GASTROOESOPHAGEAL REFLUX DISEASE
     Dosage: EVERYDAY
     Route: 048
  5. PRILOSEC [Suspect]
     Indication: GASTROOESOPHAGEAL REFLUX DISEASE
     Dosage: TWO EVERY OTHER DAY
     Route: 048
  6. PRILOSEC [Suspect]
     Indication: GASTROOESOPHAGEAL REFLUX DISEASE
     Route: 048
     Dates: start: 200610, end: 200611
  7. LORATAB [Suspect]
     Indication: PAIN
     Dosage: 7.5/ 50
     Route: 065
  8. METHYLPREDNISOLONE [Concomitant]
     Dates: start: 20070821
  9. CLARITHROMYCIN ER [Concomitant]
     Dates: start: 20080331
  10. AZITHROMYCIN [Concomitant]
     Dates: start: 20090109
  11. DOXYCYCLINE HYCLATE [Concomitant]
     Dates: start: 20090331
  12. HYDROCODON ACETAMINOPH [Concomitant]
     Dates: start: 20090204
  13. CEPHALEXIN [Concomitant]
     Dates: start: 20090204
  14. CIPROFLOXACIN HCL [Concomitant]
     Dates: start: 20090213
  15. PROTONIX [Concomitant]
     Indication: GASTROOESOPHAGEAL REFLUX DISEASE
     Dosage: ONCE A DAY
  16. PROTONIX [Concomitant]
     Indication: GASTROOESOPHAGEAL REFLUX DISEASE
     Dates: start: 199501, end: 200610
  17. FLEXERIL [Concomitant]
     Indication: MUSCLE SPASMS
     Dates: start: 20110222
  18. HYDROCHLOROTHIAZIDE [Concomitant]
     Dates: start: 20110214
  19. ZANAFLEX [Concomitant]

REACTIONS (6)
  - Ankle fracture [Unknown]
  - Joint dislocation [Unknown]
  - Osteoporosis [Unknown]
  - Multiple fractures [Unknown]
  - Bone marrow disorder [Unknown]
  - Malaise [Unknown]
